FAERS Safety Report 10051193 (Version 4)
Quarter: 2014Q2

REPORT INFORMATION
  Report Type: Spontaneous
  Country: US (occurrence: US)
  Receive Date: 20140401
  Receipt Date: 20140605
  Transmission Date: 20141212
  Serious: Yes (Other)
  Sender: FDA-Public Use
  Company Number: US-PFIZER INC-2014090758

PATIENT
  Sex: Female

DRUGS (1)
  1. LYRICA [Suspect]
     Indication: PARAESTHESIA
     Dosage: UNK

REACTIONS (2)
  - Off label use [Unknown]
  - Angina pectoris [Unknown]
